FAERS Safety Report 5040007-7 (Version None)
Quarter: 2006Q2

REPORT INFORMATION
  Report Type: 
  Country: None (occurrence: None)
  Receive Date: 20060630
  Receipt Date: 20060623
  Transmission Date: 20061013
  Serious: Yes (Hospitalization)
  Sender: FDA-Public Use
  Company Number: US-JNJFOC-20060205338

PATIENT
  Sex: Female
  Weight: 67.59 kg

DRUGS (10)
  1. FENTANYL TRANSDERMAL SYSTEM [Suspect]
     Indication: PAIN
     Route: 062
  2. GABAPENTIN [Concomitant]
     Indication: PAIN
     Route: 048
  3. SYNTHROID [Concomitant]
     Indication: HYPOTHYROIDISM
     Route: 048
  4. AMITRIPTYLINE HCL [Concomitant]
     Indication: PAIN
     Route: 048
  5. ESTRADIOL [Concomitant]
     Indication: HORMONE REPLACEMENT THERAPY
     Route: 048
  6. CELEBREX [Concomitant]
     Indication: PAIN
     Route: 048
  7. KLONOPIN [Concomitant]
     Indication: RESTLESS LEGS SYNDROME
     Route: 054
  8. PROVERA [Concomitant]
     Indication: HORMONE REPLACEMENT THERAPY
     Route: 048
  9. PARAFON FORTE [Concomitant]
     Indication: MUSCLE RELAXANT THERAPY
     Route: 048
  10. HYDROMORPHONE HCL [Concomitant]
     Indication: BREAKTHROUGH PAIN
     Dosage: 8 MG EVERY 4 HOURS AS NEEDED, ORAL
     Route: 048

REACTIONS (2)
  - NEURALGIA [None]
  - THERAPEUTIC RESPONSE DECREASED [None]
